FAERS Safety Report 5391079-1 (Version None)
Quarter: 2007Q3

REPORT INFORMATION
  Report Type: 
  Country: None (occurrence: None)
  Receive Date: 20070719
  Receipt Date: 20070709
  Transmission Date: 20080115
  Serious: Yes (Death, Hospitalization)
  Sender: FDA-Public Use
  Company Number: US-ELI_LILLY_AND_COMPANY-US200707003323

PATIENT
  Age: 20 Year
  Sex: Female

DRUGS (7)
  1. GEMCITABINE HCL [Suspect]
     Indication: HODGKIN'S DISEASE
     Dosage: 1000 MG/M2, OTHER
  2. DOXORUBICIN HCL [Concomitant]
     Indication: HODGKIN'S DISEASE
  3. BLEOMYCIN [Concomitant]
     Indication: HODGKIN'S DISEASE
  4. VINBLASTINE SULFATE [Concomitant]
     Indication: HODGKIN'S DISEASE
  5. DACARBAZINE [Concomitant]
     Indication: HODGKIN'S DISEASE
  6. VINORELBINE [Concomitant]
     Indication: HODGKIN'S DISEASE
     Dosage: 20 MG/M2, OTHER
  7. DOXIL [Concomitant]
     Indication: HODGKIN'S DISEASE
     Dosage: 20 MG/M2, OTHER

REACTIONS (3)
  - ACUTE RESPIRATORY DISTRESS SYNDROME [None]
  - PERICARDIAL EFFUSION [None]
  - PLEURAL EFFUSION [None]
